FAERS Safety Report 12729787 (Version 1)
Quarter: 2016Q3

REPORT INFORMATION
  Report Type: Spontaneous
  Country: US (occurrence: US)
  Receive Date: 20160909
  Receipt Date: 20160909
  Transmission Date: 20161109
  Serious: No
  Sender: FDA-Public Use
  Company Number: US-PFIZER INC-2016423288

PATIENT
  Sex: Female

DRUGS (4)
  1. DARVOCET-N 100 [Suspect]
     Active Substance: ACETAMINOPHEN\PROPOXYPHENE NAPSYLATE
     Dosage: UNK, (50 TABLETS)
  2. PEN-VEE-K [Suspect]
     Active Substance: PENICILLIN V POTASSIUM
     Dosage: 500 MG, UNK
  3. ERYTHROMYCIN. [Suspect]
     Active Substance: ERYTHROMYCIN
     Dosage: 250 MG, UNK, (TABLET)
  4. CIPRO [Suspect]
     Active Substance: CIPROFLOXACIN HYDROCHLORIDE
     Dosage: 500 MG, UNK

REACTIONS (1)
  - Drug hypersensitivity [Unknown]
